FAERS Safety Report 9708236 (Version 1)
Quarter: 2013Q4

REPORT INFORMATION
  Report Type: Report from Study
  Country: BR (occurrence: BR)
  Receive Date: 20131125
  Receipt Date: 20131125
  Transmission Date: 20140711
  Serious: Yes (Hospitalization, Other)
  Sender: FDA-Public Use
  Company Number: PHHY2013BR134531

PATIENT
  Sex: Female
  Weight: 52 kg

DRUGS (4)
  1. EXJADE [Suspect]
     Indication: SICKLE CELL ANAEMIA
     Dosage: 2 DF (500 MG)
  2. AMITRIPTYLINE [Concomitant]
     Dosage: 2 DF, AT NIGHT
  3. HYDROXYUREA [Concomitant]
     Indication: HAEMOGLOBIN DECREASED
     Dosage: UNK UKN, UNK
  4. HYDROXYUREA [Concomitant]
     Indication: PROPHYLAXIS

REACTIONS (2)
  - Pneumonia [Recovered/Resolved]
  - Thoracic outlet syndrome [Recovered/Resolved]
